FAERS Safety Report 4808792-4 (Version None)
Quarter: 2005Q4

REPORT INFORMATION
  Report Type: 
  Country: None (occurrence: None)
  Receive Date: 20051021
  Receipt Date: 20000217
  Transmission Date: 20060501
  Serious: No
  Sender: FDA-Public Use
  Company Number: AU_000201160

PATIENT
  Age: 23 Year
  Sex: Male

DRUGS (1)
  1. OLANZAPINE [Suspect]
     Dosage: 5 MG/DAY
     Dates: start: 20000213

REACTIONS (2)
  - PETECHIAE [None]
  - SKIN LESION [None]
